APPROVED DRUG PRODUCT: SULPHRIN
Active Ingredient: PREDNISOLONE ACETATE; SULFACETAMIDE SODIUM
Strength: 0.5%;10%
Dosage Form/Route: SUSPENSION/DROPS;OPHTHALMIC
Application: A088089 | Product #001
Applicant: BAUSCH AND LOMB INC
Approved: Dec 28, 1982 | RLD: No | RS: No | Type: DISCN